FAERS Safety Report 8502474-3 (Version None)
Quarter: 2012Q3

REPORT INFORMATION
  Report Type: 
  Country: None (occurrence: None)
  Receive Date: 20120711
  Receipt Date: 20120706
  Transmission Date: 20120928
  Serious: Yes (Hospitalization)
  Sender: FDA-Public Use
  Company Number: US-ABBOTT-10P-163-0642381-00

PATIENT
  Sex: Male

DRUGS (2)
  1. UNKNOWN HEART MEDICATION (NON-ABBOTT) [Suspect]
     Indication: MYOCARDIAL INFARCTION
     Dates: start: 20100401
  2. HUMIRA [Suspect]
     Indication: RHEUMATOID ARTHRITIS

REACTIONS (4)
  - MYOCARDIAL INFARCTION [None]
  - ILL-DEFINED DISORDER [None]
  - NASOPHARYNGITIS [None]
  - INFLUENZA [None]
